FAERS Safety Report 11754065 (Version 4)
Quarter: 2016Q2

REPORT INFORMATION
  Report Type: Report from Study
  Country: US (occurrence: US)
  Receive Date: 20151119
  Receipt Date: 20160519
  Transmission Date: 20160815
  Serious: Yes (Other)
  Sender: FDA-Public Use
  Company Number: US-MALLINCKRODT-T201503713

PATIENT
  Age: 50 Year
  Sex: Male
  Weight: 98 kg

DRUGS (8)
  1. PREDNISONE. [Concomitant]
     Active Substance: PREDNISONE
     Indication: COUGH
     Dosage: 1/2 OF 10 MG TABLET
     Route: 065
     Dates: end: 20150916
  2. NEXIUM [Concomitant]
     Active Substance: ESOMEPRAZOLE MAGNESIUM
  3. PREDNISONE. [Concomitant]
     Active Substance: PREDNISONE
     Dosage: UNK
     Dates: start: 20151109
  4. PRAVASTATIN [Concomitant]
     Active Substance: PRAVASTATIN\PRAVASTATIN SODIUM
  5. LOSARTAN. [Concomitant]
     Active Substance: LOSARTAN
  6. REPOSITORY CORTICOTROPIN INJECTION [Suspect]
     Active Substance: CORTICOTROPIN
     Indication: PULMONARY SARCOIDOSIS
     Dosage: 80 UNITS TWICE WKLY
     Route: 058
     Dates: start: 20150730
  7. REPOSITORY CORTICOTROPIN INJECTION [Suspect]
     Active Substance: CORTICOTROPIN
     Indication: CUTANEOUS SARCOIDOSIS
  8. AFEDITAB [Concomitant]
     Dosage: 30 MG

REACTIONS (8)
  - Product use issue [Not Recovered/Not Resolved]
  - Injection site mass [Recovered/Resolved]
  - Blood glucose increased [Not Recovered/Not Resolved]
  - Nasal septum perforation [Recovering/Resolving]
  - Cough [Not Recovered/Not Resolved]
  - Injection site pain [Recovering/Resolving]
  - Furuncle [Not Recovered/Not Resolved]
  - Nausea [Recovered/Resolved]

NARRATIVE: CASE EVENT DATE: 2015
